FAERS Safety Report 4712862-9 (Version None)
Quarter: 2005Q3

REPORT INFORMATION
  Report Type: 
  Country: None (occurrence: None)
  Receive Date: 20050712
  Receipt Date: 20050712
  Transmission Date: 20060218
  Serious: Yes (Death)
  Sender: FDA-Public Use
  Company Number: None

PATIENT
  Age: 55 Year
  Sex: Male
  Weight: 126.1 kg

DRUGS (1)
  1. VIAGRA [Suspect]
     Indication: ERECTILE DYSFUNCTION
     Dosage: PRN 2 OCCASIONS ORAL
     Route: 048

REACTIONS (3)
  - BRAIN DEATH [None]
  - CEREBROVASCULAR ACCIDENT [None]
  - MALAISE [None]
